FAERS Safety Report 7141764-6 (Version None)
Quarter: 2010Q4

REPORT INFORMATION
  Report Type: 
  Country: None (occurrence: None)
  Receive Date: 20101207
  Receipt Date: 20101130
  Transmission Date: 20110411
  Serious: Yes (Hospitalization, Other)
  Sender: FDA-Public Use
  Company Number: JP-NOVOPROD-317515

PATIENT
  Sex: Male
  Weight: 42 kg

DRUGS (7)
  1. NORDITROPIN NORDIFLEX CHU [Suspect]
     Indication: GROWTH HORMONE DEFICIENCY
     Dosage: UNKNOWN
     Route: 058
     Dates: start: 20080201
  2. FUROSEMIDE [Concomitant]
     Indication: UNIVENTRICULAR HEART
     Dosage: 30 MG, QD
     Route: 048
     Dates: start: 20050901
  3. ALDACTONE [Concomitant]
     Indication: UNIVENTRICULAR HEART
     Dosage: 75 MG, QD
     Route: 048
     Dates: start: 20050901
  4. DORNER [Concomitant]
     Indication: UNIVENTRICULAR HEART
     Dosage: 60 MG, QD
     Route: 048
     Dates: start: 19990401
  5. ENALART [Concomitant]
     Indication: PROTEIN-LOSING GASTROENTEROPATHY
     Dosage: 2.5 MG, QD
     Route: 048
     Dates: start: 20021001
  6. FAMOTIDINE [Concomitant]
     Indication: GASTROINTESTINAL HAEMORRHAGE
     Dosage: 20 MG, QD
     Route: 048
     Dates: start: 20080908, end: 20100301
  7. FERROMIA                           /00023520/ [Concomitant]
     Indication: ANAEMIA
     Dosage: 200 MG, QD
     Route: 048
     Dates: start: 20080908, end: 20100301

REACTIONS (2)
  - GASTROINTESTINAL HAEMORRHAGE [None]
  - PROTEIN-LOSING GASTROENTEROPATHY [None]
